FAERS Safety Report 6654707-6 (Version None)
Quarter: 2010Q1

REPORT INFORMATION
  Report Type: 
  Country: None (occurrence: None)
  Receive Date: 20100326
  Receipt Date: 20100323
  Transmission Date: 20100710
  Serious: Yes (Death)
  Sender: FDA-Public Use
  Company Number: US-GILEAD-2010-0028091

PATIENT
  Sex: Female

DRUGS (11)
  1. LETAIRIS [Suspect]
     Indication: PULMONARY ARTERIAL HYPERTENSION
     Route: 048
     Dates: start: 20080512
  2. FLOLAN [Concomitant]
  3. ADCIRCA [Concomitant]
  4. COUMADIN [Concomitant]
  5. PREVACID [Concomitant]
  6. HYDROCODONE BITARTRATE AND ACETAMINOPHEN [Concomitant]
  7. OXYCODONE HCL [Concomitant]
  8. CALCITRIOL [Concomitant]
  9. SYNTHROID [Concomitant]
  10. PREDNISONE [Concomitant]
  11. CALCIUM CARBONATE [Concomitant]

REACTIONS (1)
  - DEATH [None]
